FAERS Safety Report 11700483 (Version 2)
Quarter: 2015Q4

REPORT INFORMATION
  Report Type: Spontaneous
  Country: CZ (occurrence: CZ)
  Receive Date: 20151105
  Receipt Date: 20151202
  Transmission Date: 20160304
  Serious: Yes (Death, Hospitalization, Other)
  Sender: FDA-Public Use
  Company Number: CZ-WATSON-2015-20852

PATIENT
  Age: 14 Year
  Sex: Female

DRUGS (2)
  1. METOPROLOL (UNKNOWN) [Suspect]
     Active Substance: METOPROLOL
     Indication: SUICIDE ATTEMPT
     Dosage: PROBABLY 1000 MG
     Route: 048
  2. PROPAFENONE (WATSON LABORATORIES) [Interacting]
     Active Substance: PROPAFENONE
     Indication: SUICIDE ATTEMPT
     Dosage: PROBABLY 1500?3000 MG
     Route: 048

REACTIONS (6)
  - Drug interaction [Fatal]
  - Overdose [Fatal]
  - Brain oedema [Unknown]
  - Cardiac arrest [Not Recovered/Not Resolved]
  - Acute kidney injury [Unknown]
  - Electrocardiogram QRS complex prolonged [Unknown]
